FAERS Safety Report 10055832 (Version 1)
Quarter: 2014Q2

REPORT INFORMATION
  Report Type: Spontaneous
  Country: US (occurrence: US)
  Receive Date: 20140403
  Receipt Date: 20140403
  Transmission Date: 20141212
  Serious: Yes (Hospitalization)
  Sender: FDA-Public Use
  Company Number: US-MYLANLABS-2014S1006800

PATIENT
  Age: 46 Year
  Sex: Male

DRUGS (1)
  1. AMITRIPTYLINE [Suspect]
     Route: 065

REACTIONS (3)
  - Overdose [Unknown]
  - Drug abuse [Unknown]
  - Mental status changes [Unknown]
